FAERS Safety Report 25787820 (Version 1)
Quarter: 2025Q3

REPORT INFORMATION
  Report Type: Spontaneous
  Country: CN (occurrence: CN)
  Receive Date: 20250910
  Receipt Date: 20250910
  Transmission Date: 20251020
  Serious: Yes (Other)
  Sender: ALEXION PHARMACEUTICALS
  Company Number: CN-ASTRAZENECA-202509CHN006120CN

PATIENT
  Age: 77 Year
  Sex: Female
  Weight: 62.6 kg

DRUGS (1)
  1. DAPAGLIFLOZIN [Suspect]
     Active Substance: DAPAGLIFLOZIN
     Indication: Type 2 diabetes mellitus
     Dosage: 10 MILLIGRAM, QD
     Dates: start: 20250904, end: 20250904

REACTIONS (6)
  - Urinary tract infection [Recovering/Resolving]
  - Micturition urgency [Recovering/Resolving]
  - Dysuria [Recovering/Resolving]
  - White blood cells urine positive [Recovering/Resolving]
  - Glycosuria [Unknown]
  - Proteinuria [Unknown]

NARRATIVE: CASE EVENT DATE: 20250904
